FAERS Safety Report 25987759 (Version 1)
Quarter: 2025Q4

REPORT INFORMATION
  Report Type: Other
  Country: AU (occurrence: AU)
  Receive Date: 20251103
  Receipt Date: 20251103
  Transmission Date: 20260117
  Serious: Yes (Disabling, Other)
  Sender: TOLMAR
  Company Number: AU-Tolmar-TLM-2025-07881

PATIENT
  Age: 75 Year
  Sex: Male

DRUGS (5)
  1. ELIGARD [Suspect]
     Active Substance: LEUPROLIDE ACETATE
     Indication: Prostate cancer
  2. ELIGARD [Suspect]
     Active Substance: LEUPROLIDE ACETATE
     Indication: Prostate cancer
  3. ABIRATERONE ACETATE [Suspect]
     Active Substance: ABIRATERONE ACETATE
     Indication: Product used for unknown indication
     Dates: start: 202309
  4. ENZALUTAMIDE [Suspect]
     Active Substance: ENZALUTAMIDE
     Indication: Product used for unknown indication
     Dates: start: 202303
  5. PEMBROLIZUMAB [Suspect]
     Active Substance: PEMBROLIZUMAB
     Indication: Malignant melanoma stage II
     Dosage: INTERVAL: 3 WEEK
     Route: 042
     Dates: start: 20231017, end: 20231017

REACTIONS (3)
  - Immune-mediated neuropathy [Recovered/Resolved with Sequelae]
  - Immune-mediated hypothyroidism [Unknown]
  - Immune-mediated hepatitis [Unknown]
